FAERS Safety Report 9140372 (Version 1)
Quarter: 2013Q1

REPORT INFORMATION
  Report Type: Spontaneous
  Country: BR (occurrence: BR)
  Receive Date: 20130305
  Receipt Date: 20130305
  Transmission Date: 20140127
  Serious: Yes (Hospitalization, Other)
  Sender: FDA-Public Use
  Company Number: PHHY2013BR020764

PATIENT
  Sex: Female
  Weight: 75 kg

DRUGS (8)
  1. ONBREZ [Suspect]
     Indication: BRONCHITIS
     Dosage: 150 UG, QD
     Dates: start: 2012
  2. ANCORON [Suspect]
     Indication: ARRHYTHMIA
  3. INSULIN [Concomitant]
     Indication: DIABETES MELLITUS
     Dosage: UNK UNK, QD
     Route: 058
  4. FUROSEMIDE [Concomitant]
     Indication: HYPERTENSION
     Dosage: 50 MG, QD
     Route: 048
     Dates: start: 201301
  5. LOSARTAN [Concomitant]
     Indication: HYPERTENSION
     Dosage: 50 MG, BID
     Route: 048
  6. FORASEQ [Concomitant]
     Indication: BRONCHITIS
     Dosage: UNK
  7. DAONIL [Concomitant]
     Indication: DIABETES MELLITUS
     Dosage: 50 MG, BID
     Route: 048
  8. ACARBOSE [Concomitant]
     Indication: DIABETES MELLITUS
     Dosage: 100 MG, BID
     Route: 048

REACTIONS (3)
  - Bradycardia [Recovered/Resolved]
  - Pneumonia [Recovered/Resolved]
  - Off label use [Unknown]
